FAERS Safety Report 14854113 (Version 2)
Quarter: 2018Q2

REPORT INFORMATION
  Report Type: Report from Study
  Country: CO (occurrence: CO)
  Receive Date: 20180507
  Receipt Date: 20180523
  Transmission Date: 20180711
  Serious: Yes (Hospitalization)
  Sender: FDA-Public Use
  Company Number: CO-JNJFOC-20180435767

PATIENT
  Age: 71 Year
  Sex: Male
  Weight: 79 kg

DRUGS (1)
  1. STELARA [Suspect]
     Active Substance: USTEKINUMAB
     Indication: PSORIASIS
     Route: 058
     Dates: start: 20151029, end: 20170828

REACTIONS (8)
  - Pleural effusion [Unknown]
  - Ophthalmoplegia [Not Recovered/Not Resolved]
  - Toothache [Recovering/Resolving]
  - Bacterial infection [Recovering/Resolving]
  - Urinary tract infection bacterial [Recovering/Resolving]
  - Lung perforation [Unknown]
  - Skin bacterial infection [Recovering/Resolving]
  - Post procedural infection [Unknown]

NARRATIVE: CASE EVENT DATE: 20180207
